FAERS Safety Report 9520658 (Version 1)
Quarter: 2013Q3

REPORT INFORMATION
  Report Type: Spontaneous
  Country: CH (occurrence: CH)
  Receive Date: 20130913
  Receipt Date: 20130913
  Transmission Date: 20140515
  Serious: Yes (Life-Threatening, Hospitalization)
  Sender: FDA-Public Use
  Company Number: CH-ASTRAZENECA-2013SE68517

PATIENT
  Age: 56 Year
  Sex: Male

DRUGS (8)
  1. ZESTRIL [Suspect]
     Route: 048
  2. INSPRA [Interacting]
     Route: 048
     Dates: start: 20130611, end: 20130823
  3. ATORVASTATIN [Concomitant]
     Route: 048
  4. ASPIRIN CARDIO [Concomitant]
     Route: 048
  5. PLAVIX [Concomitant]
     Route: 048
  6. CONCOR [Concomitant]
     Route: 048
  7. LANTUS [Concomitant]
     Route: 058
  8. NOVORAPID [Concomitant]
     Route: 058

REACTIONS (3)
  - Drug interaction [Unknown]
  - Metabolic acidosis [Not Recovered/Not Resolved]
  - Hyperkalaemia [Not Recovered/Not Resolved]
